FAERS Safety Report 4578245-X (Version None)
Quarter: 2005Q1

REPORT INFORMATION
  Report Type: 
  Country: None (occurrence: None)
  Receive Date: 20050209
  Receipt Date: 20050128
  Transmission Date: 20050727
  Serious: Yes (Hospitalization)
  Sender: FDA-Public Use
  Company Number: 2005021228

PATIENT
  Age: 69 Year
  Sex: Male
  Weight: 86.1834 kg

DRUGS (4)
  1. BENADRYL [Suspect]
     Dosage: ORAL
     Route: 048
     Dates: end: 20050127
  2. LISINOPRIL [Concomitant]
  3. METOPROLOL TARTRATE [Concomitant]
  4. LANSOPRAZOLE [Concomitant]

REACTIONS (4)
  - FACE OEDEMA [None]
  - GALLBLADDER DISORDER [None]
  - OEDEMA MOUTH [None]
  - RASH [None]
